FAERS Safety Report 6600845-3 (Version None)
Quarter: 2010Q1

REPORT INFORMATION
  Report Type: 
  Country: None (occurrence: None)
  Receive Date: 20100225
  Receipt Date: 20100210
  Transmission Date: 20100710
  Serious: Yes (Other)
  Sender: FDA-Public Use
  Company Number: US-ELI_LILLY_AND_COMPANY-US201002003939

PATIENT
  Sex: Female

DRUGS (5)
  1. EVISTA [Suspect]
     Indication: OSTEOPOROSIS
     Dosage: 60 MG, DAILY (1/D)
     Dates: end: 20100101
  2. CALCIUM [Concomitant]
  3. VITAMIN B1 TAB [Concomitant]
  4. MULTI-VITAMIN [Concomitant]
  5. ACTONEL [Concomitant]

REACTIONS (4)
  - GINGIVAL DISORDER [None]
  - NERVOUSNESS [None]
  - ORAL SURGERY [None]
  - OSTEONECROSIS [None]
